FAERS Safety Report 4556377-X (Version None)
Quarter: 2005Q1

REPORT INFORMATION
  Report Type: 
  Country: None (occurrence: None)
  Receive Date: 20050103
  Receipt Date: 20040820
  Transmission Date: 20050727
  Serious: Yes (Other)
  Sender: FDA-Public Use
  Company Number: 2004UW17772

PATIENT
  Age: 71 Year
  Sex: Male

DRUGS (9)
  1. CRESTOR [Suspect]
     Dosage: 10 MG
  2. ACTOS [Concomitant]
  3. ASPIRIN [Concomitant]
  4. MULTI-VITAMINS [Concomitant]
  5. MONOPRIL [Concomitant]
  6. COREG [Concomitant]
  7. DIGOXIN [Concomitant]
  8. LASIX [Concomitant]
  9. SPIRONOLACTONE [Concomitant]

REACTIONS (1)
  - BLOOD TRIGLYCERIDES INCREASED [None]
